FAERS Safety Report 7996112-6 (Version None)
Quarter: 2011Q4

REPORT INFORMATION
  Report Type: 
  Country: None (occurrence: None)
  Receive Date: 20111216
  Receipt Date: 20111130
  Transmission Date: 20120403
  Serious: Yes (Other)
  Sender: FDA-Public Use
  Company Number: NSR_00304_2011

PATIENT
  Sex: Female
  Weight: 104.3273 kg

DRUGS (16)
  1. FERGON [Concomitant]
  2. GLIPIZIDE [Concomitant]
  3. ALLOPURINOL [Concomitant]
  4. SIMAVASTATIN [Concomitant]
  5. LIPITOR [Concomitant]
  6. GLUCOPHAGE [Concomitant]
  7. ATENOLOL [Concomitant]
  8. METFORMIN [Concomitant]
  9. CLONOPIN [Concomitant]
  10. ALLOPURINOL [Suspect]
     Indication: BLOOD URIC ACID INCREASED
     Dosage: (300 MG QD ORAL)
     Route: 048
  11. LOZOL [Concomitant]
  12. INDAPAMIDE [Concomitant]
  13. ATACAND [Concomitant]
  14. CLONIDINE [Concomitant]
  15. AMLODIPINE [Concomitant]
  16. MULTI-VITAMINS [Concomitant]

REACTIONS (28)
  - BLOOD IRON DECREASED [None]
  - ARRHYTHMIA [None]
  - ELECTROLYTE IMBALANCE [None]
  - BLOOD ALKALINE PHOSPHATASE INCREASED [None]
  - STEVENS-JOHNSON SYNDROME [None]
  - DYSPNOEA [None]
  - DIABETES MELLITUS [None]
  - GASTROOESOPHAGEAL REFLUX DISEASE [None]
  - IMPAIRED GASTRIC EMPTYING [None]
  - RASH ERYTHEMATOUS [None]
  - GASTROENTERITIS [None]
  - ABDOMINAL DISTENSION [None]
  - TRANSAMINASES INCREASED [None]
  - VASCULITIS [None]
  - FLATULENCE [None]
  - DYSGEUSIA [None]
  - ERUCTATION [None]
  - GASTRITIS [None]
  - HEPATIC ENZYME INCREASED [None]
  - PALPITATIONS [None]
  - CARDIAC MURMUR [None]
  - OVERGROWTH BACTERIAL [None]
  - FLUSHING [None]
  - PEPTIC ULCER [None]
  - IRON DEFICIENCY [None]
  - ANAEMIA [None]
  - BLOOD PRESSURE INCREASED [None]
  - DEHYDRATION [None]
